FAERS Safety Report 14961463 (Version 6)
Quarter: 2018Q4

REPORT INFORMATION
  Report Type: Report from Study
  Country: HK (occurrence: HK)
  Receive Date: 20180601
  Receipt Date: 20181219
  Transmission Date: 20190204
  Serious: Yes (Hospitalization)
  Sender: FDA-Public Use
  Company Number: PHHY2018HK049986

PATIENT
  Age: 63 Year
  Sex: Male
  Weight: 51.32 kg

DRUGS (44)
  1. REVOLADE [Suspect]
     Active Substance: ELTROMBOPAG
     Dosage: 25 MG, QD
     Route: 048
     Dates: start: 20181018, end: 20181024
  2. IMMUNE GLOBULIN NOS [Concomitant]
     Active Substance: IMMUNE GLOBULIN NOS
     Dosage: 60 G, QD (60 G / QD (1 X DAILY))
     Route: 042
     Dates: start: 20170709
  3. IMMUNE GLOBULIN NOS [Concomitant]
     Active Substance: IMMUNE GLOBULIN NOS
     Dosage: 60 G, QD (60 G / QD (1 X DAILY))
     Route: 042
     Dates: start: 20170810
  4. PREDNISOLONE. [Concomitant]
     Active Substance: PREDNISOLONE
     Dosage: 7.5 MG, QD (7.5 MG / QD (1 X DAILY))
     Route: 048
     Dates: start: 20180123, end: 20180214
  5. IMMUNE GLOBULIN NOS [Concomitant]
     Active Substance: IMMUNE GLOBULIN NOS
     Dosage: 60 G, QD (60 G / QD (1 X DAILY))
     Route: 042
     Dates: start: 20170623
  6. IMMUNE GLOBULIN NOS [Concomitant]
     Active Substance: IMMUNE GLOBULIN NOS
     Dosage: 60 G, QD (60 G / QD (1 X DAILY))
     Route: 042
     Dates: start: 20170711
  7. CELLCEPT [Concomitant]
     Active Substance: MYCOPHENOLATE MOFETIL\MYCOPHENOLATE MOFETIL HYDROCHLORIDE
     Indication: PRODUCT USED FOR UNKNOWN INDICATION
     Dosage: 1 GM AM AND 500MG PM
     Route: 065
  8. REVOLADE [Suspect]
     Active Substance: ELTROMBOPAG
     Indication: IMMUNE THROMBOCYTOPENIC PURPURA
     Dosage: 25 MG, QD
     Route: 048
     Dates: start: 20171017, end: 20171113
  9. REVOLADE [Suspect]
     Active Substance: ELTROMBOPAG
     Dosage: 50 MG, QD
     Route: 048
     Dates: start: 20171114, end: 20171127
  10. REVOLADE [Suspect]
     Active Substance: ELTROMBOPAG
     Dosage: 50/75 MG ALTERNATING DAILY
     Route: 048
     Dates: start: 20180911, end: 20181015
  11. REVOLADE [Suspect]
     Active Substance: ELTROMBOPAG
     Dosage: 50/75 MG ALTERNATING DAILY
     Route: 048
     Dates: start: 20181113
  12. IMMUNE GLOBULIN NOS [Concomitant]
     Active Substance: IMMUNE GLOBULIN NOS
     Dosage: 60 G, QD (60 G / QD (1 X DAILY))
     Route: 042
     Dates: start: 20170710
  13. PREDNISOLONE. [Concomitant]
     Active Substance: PREDNISOLONE
     Dosage: 10 MG, QD (10 MG / QD (1 X DAILY))
     Route: 048
     Dates: start: 20171031, end: 20171113
  14. PREDNISOLONE. [Concomitant]
     Active Substance: PREDNISOLONE
     Dosage: 15 MG, QD
     Route: 048
     Dates: start: 20180710, end: 20181024
  15. IVIGLOB EX [Concomitant]
     Active Substance: HUMAN IMMUNOGLOBULIN G
     Dosage: 25 G, QD
     Route: 048
     Dates: start: 20180310, end: 20180310
  16. REVOLADE [Suspect]
     Active Substance: ELTROMBOPAG
     Dosage: 50 MG, QD
     Route: 048
     Dates: start: 20180821, end: 20180911
  17. REVOLADE [Suspect]
     Active Substance: ELTROMBOPAG
     Dosage: 50 MG, QD
     Route: 048
     Dates: start: 20181025, end: 20181112
  18. ENTECAVIR. [Concomitant]
     Active Substance: ENTECAVIR
     Indication: HEPATITIS
     Dosage: 0.5 MG, QD (0.5 MG / QD (1 X DAILY))
     Route: 048
     Dates: start: 20170414
  19. IMMUNE GLOBULIN NOS [Concomitant]
     Active Substance: IMMUNE GLOBULIN NOS
     Dosage: 24 G, QD
     Route: 042
     Dates: start: 20180309, end: 20180309
  20. MMF [Concomitant]
     Active Substance: MYCOPHENOLATE MOFETIL
     Dosage: 1000 MG, QD
     Route: 048
     Dates: start: 20180306, end: 20180516
  21. MMF [Concomitant]
     Active Substance: MYCOPHENOLATE MOFETIL
     Dosage: 500 MG, QD
     Route: 048
     Dates: start: 20180306, end: 20180516
  22. METFORMIN [Concomitant]
     Active Substance: METFORMIN HYDROCHLORIDE
     Indication: GLYCOSYLATED HAEMOGLOBIN INCREASED
     Dosage: 500 MG, BID (500 MG / BID (2 X DAILY))
     Route: 048
     Dates: start: 20180123
  23. PANTOLOC [Concomitant]
     Active Substance: PANTOPRAZOLE SODIUM
     Indication: GASTRITIS
     Dosage: 40 MG, QD (40 MG / QD (1 X DAILY))
     Route: 048
     Dates: start: 201704
  24. IMMUNE GLOBULIN NOS [Concomitant]
     Active Substance: IMMUNE GLOBULIN NOS
     Dosage: 25 G, QD
     Route: 042
     Dates: start: 20180310, end: 20180310
  25. PREDNISOLONE. [Concomitant]
     Active Substance: PREDNISOLONE
     Dosage: 10 MG, QD (10 MG / QD (1 X DAILY))
     Route: 048
     Dates: start: 20180306, end: 20180516
  26. PREDNISOLONE. [Concomitant]
     Active Substance: PREDNISOLONE
     Dosage: 10 MG, QD
     Route: 048
     Dates: start: 20180529, end: 20180702
  27. REVOLADE [Suspect]
     Active Substance: ELTROMBOPAG
     Dosage: 50 / 75 MG ALTERNATING DAILY
     Route: 048
     Dates: start: 20171128, end: 20180101
  28. REVOLADE [Suspect]
     Active Substance: ELTROMBOPAG
     Dosage: 75 MG, QD
     Route: 048
     Dates: start: 20180102, end: 20180807
  29. METFORMIN [Concomitant]
     Active Substance: METFORMIN HYDROCHLORIDE
     Indication: DIABETES MELLITUS
     Dosage: 1000 MG, BID (1000 MG / BID (2 X DAILY))
     Route: 048
     Dates: start: 201704
  30. IMMUNE GLOBULIN NOS [Concomitant]
     Active Substance: IMMUNE GLOBULIN NOS
     Indication: IMMUNE THROMBOCYTOPENIC PURPURA
     Dosage: 60 G, QD (60 G / QD (1 X DAILY))
     Route: 042
     Dates: start: 20170622
  31. IMMUNE GLOBULIN NOS [Concomitant]
     Active Substance: IMMUNE GLOBULIN NOS
     Dosage: 60 G, QD (60 G / QD (1 X DAILY))
     Route: 042
     Dates: start: 20170708
  32. PREDNISOLONE. [Concomitant]
     Active Substance: PREDNISOLONE
     Dosage: 7.5 MG, QD (7.5 MG / QD (1 X DAILY))
     Route: 048
     Dates: start: 20171114, end: 20171127
  33. CALCICHEW D3 [Concomitant]
     Active Substance: CALCIUM\CHOLECALCIFEROL
     Indication: PRODUCT USED FOR UNKNOWN INDICATION
     Dosage: 1 DF, QD
     Route: 065
  34. IVIGLOB EX [Concomitant]
     Active Substance: HUMAN IMMUNOGLOBULIN G
     Indication: IMMUNE THROMBOCYTOPENIC PURPURA
     Dosage: 24 G, QD
     Route: 048
     Dates: start: 20180309, end: 20180309
  35. METFORMIN [Concomitant]
     Active Substance: METFORMIN HYDROCHLORIDE
     Dosage: 500 MG, QD
     Route: 048
  36. ZOCOR [Concomitant]
     Active Substance: SIMVASTATIN
     Indication: HYPERLIPIDAEMIA
     Dosage: 20 MG, QD
     Route: 048
     Dates: start: 20170825, end: 20180604
  37. IMMUNE GLOBULIN NOS [Concomitant]
     Active Substance: IMMUNE GLOBULIN NOS
     Dosage: 60 G, QD (60 G / QD (1 X DAILY))
     Route: 042
     Dates: start: 20170818
  38. PREDNISOLONE. [Concomitant]
     Active Substance: PREDNISOLONE
     Indication: IMMUNE THROMBOCYTOPENIC PURPURA
     Dosage: 12.5 MG, QD (12.5 MG / QD (1 X DAILY))
     Route: 048
     Dates: start: 20171024, end: 20171030
  39. PREDNISOLONE. [Concomitant]
     Active Substance: PREDNISOLONE
     Dosage: 10 MG, QD (10 MG / QD (1 X DAILY))
     Route: 048
     Dates: start: 20180215
  40. PREDNISOLONE. [Concomitant]
     Active Substance: PREDNISOLONE
     Dosage: 30 MG, QD
     Route: 048
     Dates: start: 20180703, end: 20180705
  41. MMF [Concomitant]
     Active Substance: MYCOPHENOLATE MOFETIL
     Indication: IMMUNE THROMBOCYTOPENIC PURPURA
     Dosage: 500 MG, BID
     Route: 048
     Dates: start: 20180215, end: 20180305
  42. PREDNISOLONE. [Concomitant]
     Active Substance: PREDNISOLONE
     Dosage: 10 MG, QD (10 MG / QD (1 X DAILY))
     Route: 048
     Dates: start: 20171128, end: 20180122
  43. PREDNISOLONE. [Concomitant]
     Active Substance: PREDNISOLONE
     Dosage: 20 MG, QD
     Route: 048
     Dates: start: 20180706, end: 20180709
  44. PREDNISOLONE. [Concomitant]
     Active Substance: PREDNISOLONE
     Dosage: 10 MG, QD
     Route: 048
     Dates: start: 20181025

REACTIONS (3)
  - Jaundice [Not Recovered/Not Resolved]
  - Blood bilirubin increased [Not Recovered/Not Resolved]
  - Alanine aminotransferase increased [Unknown]

NARRATIVE: CASE EVENT DATE: 20180302
